FAERS Safety Report 5088079-8 (Version None)
Quarter: 2006Q3

REPORT INFORMATION
  Report Type: 
  Country: None (occurrence: None)
  Receive Date: 20060727
  Receipt Date: 20060407
  Transmission Date: 20061208
  Serious: Yes (Other)
  Sender: FDA-Public Use
  Company Number: 2006026621

PATIENT
  Age: 51 Year
  Sex: Female
  Weight: 56.6996 kg

DRUGS (4)
  1. LYRICA [Suspect]
     Indication: NEURALGIA
     Dosage: 100 MG (50 MG, 2 IN 1 D), ORAL
     Route: 048
     Dates: start: 20060201
  2. VOCODIN (HYDROCODONE BITARTRATE, PARACETAMOL) [Concomitant]
  3. CLIMARA [Concomitant]
  4. PROMETRIUM [Concomitant]

REACTIONS (1)
  - NEURALGIA [None]
